FAERS Safety Report 11669047 (Version 2)
Quarter: 2015Q4

REPORT INFORMATION
  Report Type: Spontaneous
  Country: US (occurrence: US)
  Receive Date: 20151027
  Receipt Date: 20151029
  Transmission Date: 20160304
  Serious: Yes (Other)
  Sender: FDA-Public Use
  Company Number: US-PFIZER INC-2015352777

PATIENT
  Sex: Male
  Weight: 98 kg

DRUGS (10)
  1. GABAPENTIN. [Suspect]
     Active Substance: GABAPENTIN
     Dosage: 300 MG, 3X/DAY
     Dates: start: 20150826, end: 20151006
  2. ACETAMINOPHEN W/OXYCODONE [Concomitant]
     Active Substance: ACETAMINOPHEN\OXYCODONE HYDROCHLORIDE
     Indication: PAIN
     Dosage: UNK
     Dates: end: 20151015
  3. GABAPENTIN. [Suspect]
     Active Substance: GABAPENTIN
     Indication: SPINAL DISORDER
     Dosage: TOOK ONE 300MG CAPSULE AT BEDTIME ON THE FIRST DAY
     Dates: start: 20150824, end: 20150824
  4. CHLORDIAZEPOXIDE HYDROCHLORIDE, CLIDINIUM BROMIDE [Concomitant]
     Dosage: 1 DF, 2X/DAY
     Dates: start: 1974
  5. TAMSULOSIN HCL [Concomitant]
     Active Substance: TAMSULOSIN
     Indication: MICTURITION DISORDER
     Dosage: 0.4 MG, 1X/DAY
  6. LANSOPRAZOLE. [Concomitant]
     Active Substance: LANSOPRAZOLE
     Indication: GASTROOESOPHAGEAL REFLUX DISEASE
     Dosage: 30 MG, 1X/DAY
  7. CHLORDIAZEPOXIDE HYDROCHLORIDE, CLIDINIUM BROMIDE [Concomitant]
     Indication: IRRITABLE BOWEL SYNDROME
     Dosage: ONE TO TWO TABLETS ONCE A DAY
  8. GABAPENTIN. [Suspect]
     Active Substance: GABAPENTIN
     Indication: SPINAL COLUMN STENOSIS
     Dosage: 300 MG, 2X/DAY
     Dates: start: 20150825, end: 20150825
  9. HYOSCYAMINE. [Concomitant]
     Active Substance: HYOSCYAMINE
     Indication: IRRITABLE BOWEL SYNDROME
     Dosage: 0.125 MG, TAKING IT BEFORE FOOD OR EVERY 4 HOURS AS NEEDED
  10. METOPROLOL SUCCINATE. [Concomitant]
     Active Substance: METOPROLOL SUCCINATE
     Dosage: 25 MG, 1X/DAY

REACTIONS (8)
  - Product use issue [Unknown]
  - Somnolence [Unknown]
  - Pain [Unknown]
  - Feeling abnormal [Unknown]
  - Hallucination, visual [Unknown]
  - Dry mouth [Unknown]
  - Arthralgia [Recovered/Resolved]
  - Musculoskeletal disorder [Unknown]

NARRATIVE: CASE EVENT DATE: 20150925
